FAERS Safety Report 5896260-0 (Version None)
Quarter: 2008Q3

REPORT INFORMATION
  Report Type: 
  Country: None (occurrence: None)
  Receive Date: 20080924
  Receipt Date: 20070816
  Transmission Date: 20090109
  Serious: No
  Sender: FDA-Public Use
  Company Number: US-BAYER-200711366BWH

PATIENT
  Age: 38 Year
  Sex: Female
  Weight: 64 kg

DRUGS (1)
  1. AVELOX [Suspect]
     Indication: SINUSITIS
     Dosage: TOTAL DAILY DOSE: 400 MG  UNIT DOSE: 400 MG
     Route: 048
     Dates: start: 20060403, end: 20060416

REACTIONS (5)
  - BREATH ODOUR [None]
  - GLOSSODYNIA [None]
  - ORAL PAIN [None]
  - SENSITIVITY OF TEETH [None]
  - TONGUE DISCOLOURATION [None]
